FAERS Safety Report 7399605-8 (Version None)
Quarter: 2011Q2

REPORT INFORMATION
  Report Type: 
  Country: None (occurrence: None)
  Receive Date: 20110407
  Receipt Date: 20110210
  Transmission Date: 20111010
  Serious: Yes (Other)
  Sender: FDA-Public Use
  Company Number: US-BAYER-201032636NA

PATIENT
  Sex: Female

DRUGS (6)
  1. VITAMIN E [Concomitant]
  2. DARVOCET [Concomitant]
     Indication: PAIN
  3. MULTI-VITAMINS [Concomitant]
  4. POTASSIUM [Concomitant]
  5. YASMIN [Suspect]
     Indication: PRODUCT USED FOR UNKNOWN INDICATION
     Route: 048
     Dates: start: 20020813, end: 20040916
  6. CALCIUM [Concomitant]

REACTIONS (2)
  - GALLBLADDER DISORDER [None]
  - CHOLECYSTITIS CHRONIC [None]
